FAERS Safety Report 7650035-0 (Version None)
Quarter: 2011Q3

REPORT INFORMATION
  Report Type: 
  Country: None (occurrence: None)
  Receive Date: 20110802
  Receipt Date: 20110802
  Transmission Date: 20111222
  Serious: Yes (Hospitalization, Disabling)
  Sender: FDA-Public Use
  Company Number: None

PATIENT
  Age: 22 Year
  Sex: Male

DRUGS (2)
  1. FLUOXETINE [Concomitant]
     Route: 048
  2. QUETIAPINE [Suspect]
     Indication: MOOD ALTERED
     Dosage: 600 MG
     Route: 048
     Dates: start: 20110622, end: 20110707

REACTIONS (2)
  - COMPULSIVE HOARDING [None]
  - PRIAPISM [None]
